FAERS Safety Report 5168663-3 (Version None)
Quarter: 2006Q4

REPORT INFORMATION
  Report Type: 
  Country: None (occurrence: None)
  Receive Date: 20061211
  Receipt Date: 20061201
  Transmission Date: 20070319
  Serious: Yes (Hospitalization)
  Sender: FDA-Public Use
  Company Number: US-JNJFOC-20061201091

PATIENT
  Sex: Female
  Weight: 54.43 kg

DRUGS (11)
  1. INFLIXIMAB [Suspect]
     Indication: RHEUMATOID ARTHRITIS
     Route: 042
  2. LINEZOLID [Suspect]
     Indication: DRUG USE FOR UNKNOWN INDICATION
  3. ARAVA [Concomitant]
  4. PREDNISONE TAB [Concomitant]
  5. MULTI-VITAMIN [Concomitant]
  6. PARIET [Concomitant]
  7. DIGOXIN [Concomitant]
  8. METOPROLOL SUCCINATE [Concomitant]
  9. OSCAL [Concomitant]
  10. ACIPHEX [Concomitant]
  11. LEVOXYL [Concomitant]

REACTIONS (6)
  - CLOSTRIDIAL INFECTION [None]
  - INFLUENZA [None]
  - MENTAL STATUS CHANGES [None]
  - RENAL FAILURE ACUTE [None]
  - RHABDOMYOLYSIS [None]
  - THROMBOCYTOPENIA [None]
